FAERS Safety Report 9043400 (Version 1)
Quarter: 2013Q1

REPORT INFORMATION
  Report Type: Spontaneous
  Country: US (occurrence: US)
  Receive Date: 20130129
  Receipt Date: 20130129
  Transmission Date: 20140127
  Serious: No
  Sender: FDA-Public Use
  Company Number: US-ABBOTT-12P-163-0912718-00

PATIENT
  Sex: Female
  Weight: 49.94 kg

DRUGS (2)
  1. HUMIRA 40 MG/0.8 ML PEN [Suspect]
     Indication: PSORIASIS
     Dates: start: 201110
  2. UNKNOWN MEDICATION [Concomitant]
     Indication: PSORIASIS

REACTIONS (3)
  - Injection site pain [Recovered/Resolved]
  - Injection site discolouration [Recovered/Resolved]
  - Injection site bruising [Recovered/Resolved]
